FAERS Safety Report 10225181 (Version 1)
Quarter: 2014Q1

REPORT INFORMATION
  Report Type: Spontaneous
  Country: US (occurrence: None)
  Receive Date: 20140306
  Receipt Date: 20140306
  Transmission Date: 20141002
  Serious: Yes (Hospitalization)
  Sender: FDA-Public Use
  Company Number: 163-21880-13112560

PATIENT
  Age: 76 Year
  Sex: Male

DRUGS (8)
  1. REVLIMID (LENALIDOMIDE) (5 MILLIGRAM, CAPSULES) [Suspect]
     Indication: NON-HODGKIN^S LYMPHOMA
     Route: 048
     Dates: start: 201112
  2. ALLOPURINOL (ALLOPURINOL) [Concomitant]
  3. ACYCLOVIR (ACICLOVIR) (ACICLOVIR) [Concomitant]
  4. ZYRTEC (CETIRIZINE HYDROCHLORIDE) [Concomitant]
  5. FOLIC ACID (FOLIC ACID) [Concomitant]
  6. VITAMIN B-12 (CYANOCOBALAMIN) [Concomitant]
  7. CENTRUM SILVER (CENTRUM SILVER) [Concomitant]
  8. METOPROLOL (METOPROLOL) [Concomitant]

REACTIONS (2)
  - Pneumonia [None]
  - Diarrhoea [None]
